FAERS Safety Report 7166728-8 (Version None)
Quarter: 2010Q4

REPORT INFORMATION
  Report Type: 
  Country: None (occurrence: None)
  Receive Date: 20101203
  Receipt Date: 20101118
  Transmission Date: 20110411
  Serious: Yes (Death, Hospitalization, Other)
  Sender: FDA-Public Use
  Company Number: ACO_20530_2010

PATIENT
  Age: 63 Year
  Sex: Male

DRUGS (3)
  1. AMPYRA [Suspect]
     Indication: GAIT DISTURBANCE
     Dosage: 10 MG, BID, ORAL, 10 MG, QD, ORAL
     Route: 048
     Dates: start: 20100101, end: 20100101
  2. AMPYRA [Suspect]
     Indication: GAIT DISTURBANCE
     Dosage: 10 MG, BID, ORAL, 10 MG, QD, ORAL
     Route: 048
     Dates: start: 20101001, end: 20101101
  3. MULTIVITAMIN [Concomitant]

REACTIONS (6)
  - CONDITION AGGRAVATED [None]
  - DECREASED APPETITE [None]
  - GAIT DISTURBANCE [None]
  - GENERAL PHYSICAL HEALTH DETERIORATION [None]
  - INAPPROPRIATE SCHEDULE OF DRUG ADMINISTRATION [None]
  - LOSS OF CONSCIOUSNESS [None]
